FAERS Safety Report 7074563-4 (Version None)
Quarter: 2010Q4

REPORT INFORMATION
  Report Type: 
  Country: None (occurrence: None)
  Receive Date: 20101029
  Receipt Date: 20101018
  Transmission Date: 20110411
  Serious: Yes (Other)
  Sender: FDA-Public Use
  Company Number: US-WATSON-2010-14075

PATIENT
  Age: 23 Year
  Sex: Male

DRUGS (1)
  1. LAMOTRIGINE (WATSON LABORATORIES) [Suspect]
     Indication: BIPOLAR II DISORDER
     Dosage: UNK

REACTIONS (6)
  - EOSINOPHILIA [None]
  - ERYTHEMA [None]
  - MALAISE [None]
  - OROPHARYNGEAL BLISTERING [None]
  - PYREXIA [None]
  - RASH [None]
